FAERS Safety Report 5217609-8 (Version None)
Quarter: 2007Q1

REPORT INFORMATION
  Report Type: 
  Country: None (occurrence: None)
  Receive Date: 20070124
  Receipt Date: 20060508
  Transmission Date: 20070707
  Serious: No
  Sender: FDA-Public Use
  Company Number: US-GLAXOSMITHKLINE-A0604693A

PATIENT
  Age: 51 Year
  Sex: Female

DRUGS (6)
  1. PAXIL CR [Suspect]
     Dosage: 25MG PER DAY
     Route: 048
     Dates: start: 20060505, end: 20060505
  2. WELLBUTRIN XL [Suspect]
     Indication: DRUG USE FOR UNKNOWN INDICATION
     Route: 048
  3. LORAZEPAM [Concomitant]
  4. AMBIEN [Concomitant]
  5. PREDNISONE TAB [Concomitant]
  6. ASACOL [Concomitant]

REACTIONS (5)
  - DEPRESSION [None]
  - DIZZINESS [None]
  - DRY MOUTH [None]
  - HEADACHE [None]
  - NAUSEA [None]
